FAERS Safety Report 4868433-7 (Version None)
Quarter: 2005Q4

REPORT INFORMATION
  Report Type: 
  Country: None (occurrence: None)
  Receive Date: 20051229
  Receipt Date: 20051220
  Transmission Date: 20060501
  Serious: Yes (Hospitalization)
  Sender: FDA-Public Use
  Company Number: ZA-BRISTOL-MYERS SQUIBB COMPANY-13230412

PATIENT
  Age: 7 Year
  Sex: Male

DRUGS (4)
  1. EFAVIRENZ [Suspect]
     Indication: HIV INFECTION
     Route: 048
  2. STAVUDINE [Suspect]
     Indication: HIV INFECTION
     Route: 048
  3. LAMIVUDINE [Suspect]
     Indication: HIV INFECTION
     Route: 048
  4. FLUCONAZOLE [Concomitant]

REACTIONS (5)
  - ENCEPHALITIS [None]
  - FACIAL PALSY [None]
  - HERPES SIMPLEX [None]
  - INTRACRANIAL PRESSURE INCREASED [None]
  - MENINGITIS CRYPTOCOCCAL [None]
